FAERS Safety Report 18069754 (Version 4)
Quarter: 2020Q4

REPORT INFORMATION
  Report Type: Report from Study
  Country: CH (occurrence: CH)
  Receive Date: 20200727
  Receipt Date: 20201102
  Transmission Date: 20210113
  Serious: Yes (Other)
  Sender: FDA-Public Use
  Company Number: CH-BEH-2020116330

PATIENT
  Age: 31 Year
  Sex: Female
  Weight: 63 kg

DRUGS (6)
  1. PRIVIGEN [Suspect]
     Active Substance: HUMAN IMMUNOGLOBULIN G
     Dosage: 10 GRAM
     Route: 042
  2. PRIVIGEN [Suspect]
     Active Substance: HUMAN IMMUNOGLOBULIN G
     Dosage: UNK
     Route: 042
  3. PRIVIGEN [Suspect]
     Active Substance: HUMAN IMMUNOGLOBULIN G
     Indication: SECONDARY IMMUNODEFICIENCY
     Dosage: 30 GRAM
     Route: 042
     Dates: start: 201806
  4. PRIVIGEN [Suspect]
     Active Substance: HUMAN IMMUNOGLOBULIN G
     Dosage: 20 GRAM
     Route: 042
  5. PRIVIGEN [Suspect]
     Active Substance: HUMAN IMMUNOGLOBULIN G
     Dosage: UNK
     Route: 042
  6. PRIVIGEN [Suspect]
     Active Substance: HUMAN IMMUNOGLOBULIN G
     Dosage: 30 GRAM, TOT
     Route: 042
     Dates: start: 20200417, end: 20200417

REACTIONS (10)
  - Poor venous access [Not Recovered/Not Resolved]
  - Blood pressure decreased [Unknown]
  - Hypertension [Recovered/Resolved]
  - Poor venous access [Not Recovered/Not Resolved]
  - Bradycardia [Recovered/Resolved]
  - Vein disorder [Not Recovered/Not Resolved]
  - Hypotension [Recovered/Resolved]
  - Toothache [Recovered/Resolved]
  - Pulpitis dental [Not Recovered/Not Resolved]
  - Hypotension [Recovered/Resolved]

NARRATIVE: CASE EVENT DATE: 20200417
